FAERS Safety Report 8350329-X (Version None)
Quarter: 2012Q2

REPORT INFORMATION
  Report Type: 
  Country: None (occurrence: None)
  Receive Date: 20120510
  Receipt Date: 20120430
  Transmission Date: 20120825
  Serious: Yes (Other)
  Sender: FDA-Public Use
  Company Number: VE-ROCHE-1066701

PATIENT
  Sex: Female

DRUGS (2)
  1. XOLAIR [Suspect]
     Indication: ASTHMA
     Dosage: FIRST FIFTEEN DAYS OF EVERY MONTH RECEIVED 450MG AND THE LAST FIFTEEN DAYS RECEIVED 300
     Dates: start: 20101101, end: 20111115
  2. VERAPAMIL HCL [Concomitant]
     Indication: ARRHYTHMIA
     Route: 048

REACTIONS (4)
  - LABYRINTHITIS [None]
  - HYPERTENSION [None]
  - OVERDOSE [None]
  - DIZZINESS POSTURAL [None]
